FAERS Safety Report 4934098-9 (Version None)
Quarter: 2006Q1

REPORT INFORMATION
  Report Type: 
  Country: None (occurrence: None)
  Receive Date: 20060303
  Receipt Date: 20060220
  Transmission Date: 20060701
  Serious: Yes (Other)
  Sender: FDA-Public Use
  Company Number: 2006025743

PATIENT
  Sex: Female

DRUGS (4)
  1. DETROL LA [Suspect]
     Indication: HYPERTONIC BLADDER
     Dosage: 4 MG (4 MG, 1 IN 1 D), ORAL
     Route: 048
  2. DRUG, UNSPECIFIED (DRUG, UNSPECIFIED) [Concomitant]
  3. NORVASC [Concomitant]
  4. PRAVACHOL [Concomitant]

REACTIONS (3)
  - DRUG INEFFECTIVE [None]
  - ENURESIS [None]
  - NEURODEGENERATIVE DISORDER [None]
